FAERS Safety Report 21828372 (Version 1)
Quarter: 2023Q1

REPORT INFORMATION
  Report Type: Spontaneous
  Country: US (occurrence: US)
  Receive Date: 20230106
  Receipt Date: 20230106
  Transmission Date: 20230417
  Serious: Yes (Death)
  Sender: FDA-Public Use
  Company Number: US-BEH-2022153652

PATIENT
  Age: 68 Year
  Sex: Female

DRUGS (1)
  1. HUMAN IMMUNOGLOBULIN G [Suspect]
     Active Substance: HUMAN IMMUNOGLOBULIN G
     Indication: Neuromyopathy
     Dosage: 400 MILLIGRAM/KILOGRAM, QD
     Route: 042

REACTIONS (5)
  - Stress cardiomyopathy [Fatal]
  - Chest pain [Fatal]
  - No adverse event [Unknown]
  - Off label use [Unknown]
  - Respiratory failure [Fatal]
